FAERS Safety Report 24099849 (Version 1)
Quarter: 2024Q3

REPORT INFORMATION
  Report Type: Spontaneous
  Country: US (occurrence: US)
  Receive Date: 20240716
  Receipt Date: 20240716
  Transmission Date: 20241017
  Serious: No
  Sender: NOVO NORDISK
  Company Number: US-NOVOPROD-1197915

PATIENT
  Sex: Female

DRUGS (2)
  1. OZEMPIC [Suspect]
     Active Substance: SEMAGLUTIDE
     Indication: Type 2 diabetes mellitus
     Dosage: .5MG
     Route: 058
     Dates: start: 20240316
  2. NovoFine Plus (32G) [Concomitant]
     Indication: Device therapy

REACTIONS (1)
  - Vitreous floaters [Unknown]
